FAERS Safety Report 12492858 (Version 1)
Quarter: 2016Q2

REPORT INFORMATION
  Report Type: Spontaneous
  Country: US (occurrence: US)
  Receive Date: 20160623
  Receipt Date: 20160623
  Transmission Date: 20160815
  Serious: No
  Sender: FDA-Public Use
  Company Number: US-PFIZER INC-2016307872

PATIENT
  Sex: Female

DRUGS (1)
  1. ZYVOX [Suspect]
     Active Substance: LINEZOLID

REACTIONS (3)
  - Blood glucose decreased [Unknown]
  - Visual impairment [Unknown]
  - Vision blurred [Unknown]
